FAERS Safety Report 9037610 (Version 1)
Quarter: 2013Q1

REPORT INFORMATION
  Report Type: Spontaneous
  Country: US (occurrence: US)
  Receive Date: 20130129
  Receipt Date: 20130129
  Transmission Date: 20140127
  Serious: No
  Sender: FDA-Public Use
  Company Number: US-BIOGENIDEC-2013BI000782

PATIENT
  Age: 31 Year
  Sex: Female

DRUGS (7)
  1. AVONEX [Suspect]
     Indication: MULTIPLE SCLEROSIS
     Route: 030
     Dates: start: 20080404, end: 200912
  2. AVONEX [Suspect]
     Indication: MULTIPLE SCLEROSIS
     Route: 030
     Dates: start: 20120606, end: 201210
  3. DILANTIN [Concomitant]
     Indication: CONVULSION
     Dates: start: 2006, end: 2011
  4. VALIUM [Concomitant]
     Indication: CONVULSION
     Dates: start: 2000
  5. VALIUM [Concomitant]
     Indication: MUSCLE SPASMS
     Dates: start: 2000
  6. CYMBALTA [Concomitant]
     Indication: DEPRESSION
  7. LORTAB [Concomitant]
     Indication: MIGRAINE

REACTIONS (2)
  - Injection site pain [Recovered/Resolved]
  - Injection site injury [Recovered/Resolved]
